FAERS Safety Report 17158906 (Version 6)
Quarter: 2021Q2

REPORT INFORMATION
  Report Type: Spontaneous
  Country: US (occurrence: US)
  Receive Date: 20191216
  Receipt Date: 20210402
  Transmission Date: 20210716
  Serious: Yes (Other)
  Sender: FDA-Public Use
  Company Number: US-PFIZER INC-2018515083

PATIENT
  Age: 59 Year
  Sex: Female
  Weight: 74 kg

DRUGS (5)
  1. LYRICA [Suspect]
     Active Substance: PREGABALIN
     Indication: OSTEOARTHRITIS
     Dosage: 75 MG, 2X/DAY
     Route: 048
     Dates: start: 20190218, end: 2019
  2. LYRICA [Suspect]
     Active Substance: PREGABALIN
     Dosage: 75 MG, 3X/DAY
     Route: 048
     Dates: start: 20191019
  3. LYRICA [Suspect]
     Active Substance: PREGABALIN
     Dosage: 75 MG, 3X/DAY (TAKE 1 CAPSULE (75 MG TOTAL) BY MOUTH 3 (THREE) TIMES A DAY)
     Route: 048
  4. LYRICA [Suspect]
     Active Substance: PREGABALIN
     Indication: NEUROPATHY PERIPHERAL
     Dosage: 75 MG, 2X/DAY
     Route: 048
     Dates: start: 20181011
  5. LYRICA [Suspect]
     Active Substance: PREGABALIN
     Indication: FIBROMYALGIA
     Dosage: 75 MG, 2X/DAY
     Route: 048
     Dates: start: 20190208, end: 201902

REACTIONS (1)
  - Musculoskeletal disorder [Recovered/Resolved with Sequelae]

NARRATIVE: CASE EVENT DATE: 20191118
